FAERS Safety Report 16997292 (Version 2)
Quarter: 2025Q1

REPORT INFORMATION
  Report Type: Report from Study
  Country: CA (occurrence: None)
  Receive Date: 20191106
  Receipt Date: 20250129
  Transmission Date: 20250409
  Serious: Yes (Other)
  Sender: ORION
  Company Number: CA-ORION CORPORATION ORION PHARMA-TREX2019-5143

PATIENT
  Age: 48 Year
  Sex: Female

DRUGS (8)
  1. METHOTREXATE [Suspect]
     Active Substance: METHOTREXATE
     Indication: Product used for unknown indication
  2. COSENTYX [Suspect]
     Active Substance: SECUKINUMAB
     Indication: Psoriasis
  3. COSENTYX [Suspect]
     Active Substance: SECUKINUMAB
  4. COSENTYX [Suspect]
     Active Substance: SECUKINUMAB
  5. BETAMETHASONE DIPROPIONATE CALCIPOTRIOL [Concomitant]
  6. ENBREL [Concomitant]
     Active Substance: ETANERCEPT
  7. HUMIRA [Concomitant]
     Active Substance: ADALIMUMAB
  8. LYDERM [Concomitant]

REACTIONS (3)
  - Alopecia [Unknown]
  - Psoriasis [Unknown]
  - Psoriatic arthropathy [Unknown]
